FAERS Safety Report 18959991 (Version 1)
Quarter: 2021Q1

REPORT INFORMATION
  Report Type: Spontaneous
  Country: US (occurrence: US)
  Receive Date: 20210302
  Receipt Date: 20210302
  Transmission Date: 20210420
  Serious: No
  Sender: FDA-Public Use
  Company Number: US-TEVA-2021-US-1885027

PATIENT
  Sex: Male

DRUGS (1)
  1. WARFARIN TEVA [Suspect]
     Active Substance: WARFARIN SODIUM
     Indication: HEART VALVE REPLACEMENT
     Route: 065
     Dates: start: 20210120

REACTIONS (2)
  - Prothrombin time shortened [Unknown]
  - Drug ineffective [Unknown]

NARRATIVE: CASE EVENT DATE: 20210128
